FAERS Safety Report 11879866 (Version 3)
Quarter: 2016Q1

REPORT INFORMATION
  Report Type: Spontaneous
  Country: AT (occurrence: AT)
  Receive Date: 20151230
  Receipt Date: 20160216
  Transmission Date: 20160526
  Serious: Yes (Other)
  Sender: FDA-Public Use
  Company Number: AT-BAYER-2015-474431

PATIENT
  Sex: Female

DRUGS (2)
  1. NEXAVAR [Suspect]
     Active Substance: SORAFENIB
     Indication: ACUTE MYELOID LEUKAEMIA
     Dosage: 200 MG, BID
     Route: 048
     Dates: start: 20151122, end: 20151206
  2. NEXAVAR [Suspect]
     Active Substance: SORAFENIB
     Indication: CHLOROMA

REACTIONS (6)
  - Epidermolysis [Recovered/Resolved]
  - Pyrexia [Unknown]
  - Skin reaction [Recovered/Resolved]
  - Off label use [None]
  - Systemic inflammatory response syndrome [Recovering/Resolving]
  - Sepsis [Recovering/Resolving]

NARRATIVE: CASE EVENT DATE: 201511
